FAERS Safety Report 6440085-4 (Version None)
Quarter: 2009Q4

REPORT INFORMATION
  Report Type: 
  Country: None (occurrence: None)
  Receive Date: 20091113
  Receipt Date: 20080918
  Transmission Date: 20100525
  Serious: No
  Sender: FDA-Public Use
  Company Number: A0749270A

PATIENT
  Age: 58 Year
  Sex: Female
  Weight: 100.7 kg

DRUGS (19)
  1. COREG [Suspect]
     Dates: start: 20080201
  2. CHANTIX [Suspect]
  3. IMDUR [Suspect]
  4. ALDACTONE [Concomitant]
  5. PLAVIX [Concomitant]
  6. DIGOXIN [Concomitant]
  7. NITROGLYCERIN [Concomitant]
  8. LISINOPRIL [Concomitant]
  9. ASPIRIN [Concomitant]
  10. ESTRADIOL [Concomitant]
  11. PRILOSEC [Concomitant]
  12. NAPROXEN [Concomitant]
  13. ALBUTEROL [Concomitant]
  14. ATROVENT [Concomitant]
  15. SEREVENT [Concomitant]
  16. OTHER MEDICATIONS [Concomitant]
  17. OXYGEN [Concomitant]
  18. LIPITOR [Concomitant]
  19. MULTI-VITAMIN [Concomitant]

REACTIONS (3)
  - DIZZINESS [None]
  - DRUG INTERACTION [None]
  - PARAESTHESIA [None]
